FAERS Safety Report 8919110 (Version 1)
Quarter: 2012Q4

REPORT INFORMATION
  Report Type: Spontaneous
  Country: CO (occurrence: None)
  Receive Date: 20121114
  Receipt Date: 20121114
  Transmission Date: 20130627
  Serious: Yes (Other)
  Sender: FDA-Public Use
  Company Number: DSU-2012-05426

PATIENT
  Age: 76 Year
  Sex: Male

DRUGS (5)
  1. OLMETEC HCT (HYDROCHLOROTHIAZIDE, OLMESARTAN MEDOXOMIL) (TABLET) (HYDROCHLOROTHIAZIDE, OLMESARTAN MEDOXOMIL) [Suspect]
     Indication: HYPERTENSION
     Route: 048
     Dates: start: 20120403
  2. HYDROCHLOROTHIAZIDE (HYDROCHLOROTHIAZIDE) [Concomitant]
  3. LOVASTATIN (LOVASTATIN) (LOVASTATIN) [Concomitant]
  4. VERAPAMIL (VERAPAMIL) (VERAPAMIL) [Concomitant]
  5. GLIBENCLAMIDE (GLIBENCLAMIDE) [Concomitant]

REACTIONS (4)
  - Arrhythmia [None]
  - Blood pressure increased [None]
  - Blood glucose increased [None]
  - Hypersensitivity [None]
